FAERS Safety Report 4933498-0 (Version None)
Quarter: 2006Q1

REPORT INFORMATION
  Report Type: 
  Country: None (occurrence: None)
  Receive Date: 20060301
  Receipt Date: 20060216
  Transmission Date: 20060701
  Serious: Yes (Other)
  Sender: FDA-Public Use
  Company Number: HQWYE920622FEB06

PATIENT
  Age: 55 Year
  Sex: Female
  Weight: 63.11 kg

DRUGS (4)
  1. PREMARIN [Suspect]
     Indication: INCONTINENCE
     Dosage: EVERY OTHER NIGHT, VAGINAL
     Route: 067
     Dates: start: 20060103
  2. MULTIPLE VITAMINS (ASCORBIC ACID/ERGOCALCIFEROL/FOLIC ACID/RETINOL/TOC [Concomitant]
  3. CALCIUM (CALCIUM) [Concomitant]
  4. IRON (IRON) [Concomitant]

REACTIONS (6)
  - ABDOMINAL DISTENSION [None]
  - ANGINA PECTORIS [None]
  - CONDITION AGGRAVATED [None]
  - FEELING ABNORMAL [None]
  - HEADACHE [None]
  - PAIN IN EXTREMITY [None]
